FAERS Safety Report 16135102 (Version 7)
Quarter: 2019Q4

REPORT INFORMATION
  Report Type: Spontaneous
  Country: US (occurrence: US)
  Receive Date: 20190329
  Receipt Date: 20191202
  Transmission Date: 20200122
  Serious: Yes (Other)
  Sender: FDA-Public Use
  Company Number: US-JNJFOC-20190322113

PATIENT
  Age: 74 Year
  Sex: Male
  Weight: 90.8 kg

DRUGS (1)
  1. ZYTIGA [Suspect]
     Active Substance: ABIRATERONE ACETATE
     Indication: PROSTATE CANCER
     Route: 048
     Dates: start: 201709, end: 201909

REACTIONS (6)
  - Drug ineffective [Unknown]
  - Headache [Unknown]
  - Paraesthesia [Unknown]
  - Breath odour [Unknown]
  - Prostatic specific antigen increased [Unknown]
  - Taste disorder [Unknown]

NARRATIVE: CASE EVENT DATE: 201909
